FAERS Safety Report 14067419 (Version 1)
Quarter: 2017Q4

REPORT INFORMATION
  Report Type: Spontaneous
  Country: US (occurrence: US)
  Receive Date: 20171008
  Receipt Date: 20171008
  Transmission Date: 20180321
  Serious: Yes (Other)
  Sender: FDA-Public Use
  Company Number: None

PATIENT
  Sex: Male
  Weight: 74.25 kg

DRUGS (3)
  1. PRAVASTATIN. [Suspect]
     Active Substance: PRAVASTATIN
     Indication: BLOOD CHOLESTEROL INCREASED
     Dosage: ?          QUANTITY:30 TABLET(S);?
     Route: 048
     Dates: start: 20170810, end: 20170924
  2. VITAMIN D [Concomitant]
     Active Substance: CHOLECALCIFEROL
  3. FLONASE [Concomitant]
     Active Substance: FLUTICASONE PROPIONATE

REACTIONS (15)
  - C-reactive protein increased [None]
  - Hyperhidrosis [None]
  - Fatigue [None]
  - Nausea [None]
  - Pyrexia [None]
  - Product label issue [None]
  - Product use issue [None]
  - Impaired work ability [None]
  - Headache [None]
  - Malaise [None]
  - Mood swings [None]
  - Gastric disorder [None]
  - Constipation [None]
  - Educational problem [None]
  - Stomatitis [None]

NARRATIVE: CASE EVENT DATE: 20170814
